FAERS Safety Report 7675221-5 (Version None)
Quarter: 2011Q3

REPORT INFORMATION
  Report Type: 
  Country: None (occurrence: None)
  Receive Date: 20110810
  Receipt Date: 20110810
  Transmission Date: 20111222
  Serious: Yes (Other)
  Sender: FDA-Public Use
  Company Number: None

PATIENT
  Age: 70 Year
  Sex: Female
  Weight: 69.399 kg

DRUGS (1)
  1. CIPROFLOXACIN [Suspect]
     Indication: URINARY TRACT INFECTION
     Dosage: 500MG
     Dates: start: 20100312, end: 20100318

REACTIONS (5)
  - GAIT DISTURBANCE [None]
  - TENDON RUPTURE [None]
  - ARTHRALGIA [None]
  - CONTUSION [None]
  - MUSCULOSKELETAL CHEST PAIN [None]
